FAERS Safety Report 7124777-X (Version None)
Quarter: 2010Q4

REPORT INFORMATION
  Report Type: 
  Country: None (occurrence: None)
  Receive Date: 20101129
  Receipt Date: 20101118
  Transmission Date: 20110411
  Serious: Yes (Other)
  Sender: FDA-Public Use
  Company Number: FR-BRISTOL-MYERS SQUIBB COMPANY-15369788

PATIENT
  Age: 54 Year
  Sex: Male
  Weight: 57 kg

DRUGS (4)
  1. CETUXIMAB [Suspect]
     Indication: HEAD AND NECK CANCER
     Dosage: NO OF INF: 6 LAST INF: 20OCT2010
     Route: 042
     Dates: start: 20100825
  2. CISPLATIN [Suspect]
     Indication: HEAD AND NECK CANCER
     Route: 042
     Dates: start: 20100825
  3. CILENGITIDE [Suspect]
     Indication: HEAD AND NECK CANCER
     Dosage: NO OF INF:6
     Route: 042
     Dates: start: 20100825, end: 20101020
  4. FLUOROURACIL [Suspect]
     Indication: HEAD AND NECK CANCER
     Dosage: TAKEN FROM DAY 1 TO 4
     Route: 042
     Dates: start: 20100825

REACTIONS (1)
  - THROMBOPHLEBITIS SUPERFICIAL [None]
